FAERS Safety Report 6108154-6 (Version None)
Quarter: 2009Q1

REPORT INFORMATION
  Report Type: 
  Country: None (occurrence: None)
  Receive Date: 20090309
  Receipt Date: 20090224
  Transmission Date: 20090719
  Serious: Yes (Other)
  Sender: FDA-Public Use
  Company Number: US-ROCHE-559561

PATIENT
  Sex: Female

DRUGS (3)
  1. PEG-INTERFERON A-2A (RO 25-8310) [Suspect]
     Indication: HEPATITIS C
     Dosage: PREFILLED SYRINGE; PATIENT COMPLETED 37 WEEKS
     Route: 065
     Dates: start: 20070924, end: 20080604
  2. RIBASPHERE [Suspect]
     Indication: HEPATITIS C
     Dosage: PATIENT COMPLETED 37 WEEKS
     Route: 065
     Dates: start: 20070924, end: 20080604
  3. PROCRIT [Suspect]
     Indication: HAEMOGLOBIN ABNORMAL
     Route: 065

REACTIONS (12)
  - DECREASED APPETITE [None]
  - DIABETES MELLITUS INADEQUATE CONTROL [None]
  - FATIGUE [None]
  - HAEMOGLOBIN ABNORMAL [None]
  - HEART VALVE INCOMPETENCE [None]
  - HYPERTENSION [None]
  - LARYNGITIS [None]
  - LETHARGY [None]
  - NO THERAPEUTIC RESPONSE [None]
  - PAIN [None]
  - SLEEP APNOEA SYNDROME [None]
  - VISION BLURRED [None]
